FAERS Safety Report 8220767-4 (Version None)
Quarter: 2012Q1

REPORT INFORMATION
  Report Type: 
  Country: None (occurrence: None)
  Receive Date: 20120320
  Receipt Date: 20120308
  Transmission Date: 20120608
  Serious: Yes (Hospitalization)
  Sender: FDA-Public Use
  Company Number: GB-UCBSA-052605

PATIENT
  Age: 57 Year
  Sex: Female
  Weight: 70.8 kg

DRUGS (12)
  1. CERTOLIZUMAB PEGOL [Suspect]
     Indication: RHEUMATOID ARTHRITIS
     Route: 058
     Dates: start: 20110905, end: 20110905
  2. DIPROBASE [Concomitant]
     Indication: PSORIASIS
  3. FOLIC ACID [Concomitant]
  4. LISINOPRIL [Concomitant]
  5. LITHIUM CARBONATE [Concomitant]
  6. INSULIN [Concomitant]
  7. OMEPRAZOLE [Concomitant]
  8. LITHIUM CARBONATE [Concomitant]
  9. ASPIRIN [Concomitant]
  10. METHOTREXATE [Concomitant]
     Indication: RHEUMATOID ARTHRITIS
     Route: 048
     Dates: start: 20060101, end: 20111201
  11. ATORVASTATIN [Concomitant]
  12. DICLOFENAC SODIUM [Concomitant]

REACTIONS (3)
  - ERYTHRODERMIC PSORIASIS [None]
  - PUSTULAR PSORIASIS [None]
  - BREAST CANCER [None]
